FAERS Safety Report 4758156-7 (Version None)
Quarter: 2005Q3

REPORT INFORMATION
  Report Type: 
  Country: None (occurrence: None)
  Receive Date: 20050831
  Receipt Date: 20050314
  Transmission Date: 20060218
  Serious: Yes (Hospitalization)
  Sender: FDA-Public Use
  Company Number: US-MERCK-0503USA02901

PATIENT
  Age: 52 Year
  Sex: Female
  Weight: 114 kg

DRUGS (13)
  1. VIOXX [Suspect]
     Indication: PAIN MANAGEMENT
     Route: 048
     Dates: start: 20001101, end: 20010901
  2. VIOXX [Suspect]
     Route: 048
     Dates: start: 20001101, end: 20010901
  3. DICYCLOMINE HYDROCHLORIDE [Concomitant]
     Indication: GASTROOESOPHAGEAL REFLUX DISEASE
     Route: 065
     Dates: start: 19970101
  4. DICYCLOMINE HYDROCHLORIDE [Concomitant]
     Indication: PEPTIC ULCER
     Route: 065
     Dates: start: 19970101
  5. GLUCOPHAGE [Concomitant]
     Indication: DIABETES MELLITUS
     Route: 065
     Dates: start: 20000101
  6. PROZAC [Concomitant]
     Indication: DEPRESSION
     Route: 065
     Dates: start: 20000101
  7. PREVACID [Concomitant]
     Indication: GASTROOESOPHAGEAL REFLUX DISEASE
     Route: 065
     Dates: start: 19970101
  8. PREVACID [Concomitant]
     Indication: PEPTIC ULCER
     Route: 065
     Dates: start: 19970101
  9. GLUCOTROL XL [Concomitant]
     Indication: DIABETES MELLITUS
     Route: 065
     Dates: start: 20000101
  10. NITROSTAT [Concomitant]
     Indication: ANGINA PECTORIS
     Route: 065
     Dates: start: 20000101, end: 20010901
  11. ULTRAM [Concomitant]
     Indication: PAIN MANAGEMENT
     Route: 065
     Dates: start: 19950101
  12. ZESTORETIC [Concomitant]
     Route: 065
     Dates: start: 19930101
  13. LIPITOR [Concomitant]
     Route: 065

REACTIONS (9)
  - ANGINA PECTORIS [None]
  - ANXIETY [None]
  - CARDIAC FAILURE CONGESTIVE [None]
  - HERNIA [None]
  - MOBILITY DECREASED [None]
  - OVERDOSE [None]
  - PAIN [None]
  - PULMONARY EMBOLISM [None]
  - SLEEP APNOEA SYNDROME [None]
